FAERS Safety Report 13181443 (Version 1)
Quarter: 2017Q1

REPORT INFORMATION
  Report Type: Spontaneous
  Country: US (occurrence: US)
  Receive Date: 20170202
  Receipt Date: 20170202
  Transmission Date: 20170428
  Serious: No
  Sender: FDA-Public Use
  Company Number: US-PFIZER INC-2017042038

PATIENT
  Age: 75 Year
  Sex: Female
  Weight: 75 kg

DRUGS (2)
  1. PREMARIN [Suspect]
     Active Substance: ESTROGENS, CONJUGATED
     Indication: POSTMENOPAUSE
     Dosage: PLACES IN THE VAGINA, ABOUT 2CM ONCE A WEEK
  2. TIMOLOL. [Concomitant]
     Active Substance: TIMOLOL
     Indication: GLAUCOMA
     Dosage: 1 DF, 2X/DAY; LEFT EYE, 1 DROP, ONE IN THE AFTERNOON AND ONE IN THE MORNING
     Route: 047

REACTIONS (1)
  - Therapeutic response unexpected [Unknown]
